FAERS Safety Report 7272113-0 (Version None)
Quarter: 2011Q1

REPORT INFORMATION
  Report Type: 
  Country: None (occurrence: None)
  Receive Date: 20110203
  Receipt Date: 20110124
  Transmission Date: 20110831
  Serious: Yes (Other)
  Sender: FDA-Public Use
  Company Number: BE-PFIZER INC-2011022843

PATIENT
  Sex: Female

DRUGS (2)
  1. XYZAL [Concomitant]
     Indication: HYPERSENSITIVITY
  2. PANTOMED [Suspect]
     Indication: GASTROOESOPHAGEAL REFLUX DISEASE
     Dosage: 20 MG, 1X/DAY
     Route: 048
     Dates: start: 20100701

REACTIONS (1)
  - HEPATIC PAIN [None]
